FAERS Safety Report 10890196 (Version 1)
Quarter: 2015Q1

REPORT INFORMATION
  Report Type: Report from Study
  Country: DE (occurrence: DE)
  Receive Date: 20150305
  Receipt Date: 20150305
  Transmission Date: 20150721
  Serious: Yes (Hospitalization)
  Sender: FDA-Public Use
  Company Number: DE-JNJFOC-20140310799

PATIENT
  Age: 69 Year
  Sex: Female
  Weight: 105 kg

DRUGS (21)
  1. XARELTO [Suspect]
     Active Substance: RIVAROXABAN
     Indication: ATRIAL FIBRILLATION
     Route: 048
     Dates: start: 20130320
  2. LIPONSAURE [Concomitant]
     Route: 065
     Dates: start: 201111
  3. CARMEN [Concomitant]
     Active Substance: LERCANIDIPINE
     Route: 065
     Dates: start: 20130908
  4. XARELTO [Suspect]
     Active Substance: RIVAROXABAN
     Indication: CEREBROVASCULAR ACCIDENT PROPHYLAXIS
     Route: 048
     Dates: start: 20130911, end: 20140318
  5. TORASEMID [Concomitant]
     Active Substance: TORSEMIDE
     Route: 065
     Dates: start: 20130910
  6. AMIODARON [Concomitant]
     Active Substance: AMIODARONE
     Route: 065
     Dates: start: 20130822
  7. PULMICORT TURBUHALER [Concomitant]
     Active Substance: BUDESONIDE
     Dosage: 4 SUSPENSISIONEN
     Route: 065
     Dates: start: 20130612
  8. ISOPHANE INSULIN [Concomitant]
     Active Substance: INSULIN NOS
     Route: 065
     Dates: start: 2008
  9. METAMIZOL [Concomitant]
     Active Substance: METAMIZOLE SODIUM
     Route: 065
     Dates: start: 2008
  10. LANTUS [Concomitant]
     Active Substance: INSULIN GLARGINE
     Route: 065
     Dates: start: 2008
  11. MIRTAZAPIN [Concomitant]
     Active Substance: MIRTAZAPINE
     Route: 065
     Dates: start: 20130827
  12. XARELTO [Suspect]
     Active Substance: RIVAROXABAN
     Indication: CEREBROVASCULAR ACCIDENT PROPHYLAXIS
     Route: 048
     Dates: start: 20130320
  13. REMERGIL [Concomitant]
     Active Substance: MIRTAZAPINE
     Route: 065
     Dates: start: 2003
  14. TORASEMID [Concomitant]
     Active Substance: TORSEMIDE
     Route: 065
     Dates: start: 201304, end: 20130910
  15. BUDESONID [Concomitant]
     Active Substance: BUDESONIDE
     Dosage: 2 PUFF(S)
     Route: 065
     Dates: start: 20130827
  16. XARELTO [Suspect]
     Active Substance: RIVAROXABAN
     Indication: THROMBOSIS PROPHYLAXIS
     Route: 048
     Dates: start: 20130320
  17. XARELTO [Suspect]
     Active Substance: RIVAROXABAN
     Indication: THROMBOSIS PROPHYLAXIS
     Route: 048
     Dates: start: 20130911, end: 20140318
  18. XARELTO [Suspect]
     Active Substance: RIVAROXABAN
     Indication: ATRIAL FIBRILLATION
     Route: 048
     Dates: start: 20130911, end: 20140318
  19. TAXILAN [Concomitant]
     Active Substance: PERAZINE
     Route: 065
     Dates: start: 2001
  20. SIMVASTATIN. [Concomitant]
     Active Substance: SIMVASTATIN
     Route: 065
     Dates: start: 2010
  21. FORADIL [Concomitant]
     Active Substance: FORMOTEROL FUMARATE
     Route: 055
     Dates: start: 20130612

REACTIONS (4)
  - Cardiac ablation [Recovered/Resolved]
  - Atrial flutter [Recovered/Resolved]
  - Cardiac ablation [Recovered/Resolved]
  - Atrial tachycardia [Recovered/Resolved]

NARRATIVE: CASE EVENT DATE: 20130918
